FAERS Safety Report 5832245-8 (Version None)
Quarter: 2008Q3

REPORT INFORMATION
  Report Type: 
  Country: None (occurrence: None)
  Receive Date: 20080731
  Receipt Date: 20080728
  Transmission Date: 20090109
  Serious: Yes (Other)
  Sender: FDA-Public Use
  Company Number: 1000000182

PATIENT
  Age: 17 Year
  Sex: Male

DRUGS (1)
  1. CITALOPRAM HYDROBROMIDE [Suspect]
     Indication: DEPRESSION
     Dosage: 10 MG (10 MG,1 IN 1 D); 20 MG (20 MG,1 IN 1 D); 40 MG (40 MG,1 IN 1 D)

REACTIONS (1)
  - PAROSMIA [None]
